FAERS Safety Report 23335871 (Version 1)
Quarter: 2023Q4

REPORT INFORMATION
  Report Type: Other
  Country: US (occurrence: None)
  Receive Date: 20231225
  Receipt Date: 20231225
  Transmission Date: 20240109
  Serious: Yes (Other)
  Sender: FDA-Public Use
  Company Number: US-ROCHE-3478934

PATIENT

DRUGS (4)
  1. ATEZOLIZUMAB [Suspect]
     Active Substance: ATEZOLIZUMAB
     Indication: Anaplastic thyroid cancer
     Route: 042
  2. ATEZOLIZUMAB [Suspect]
     Active Substance: ATEZOLIZUMAB
     Route: 042
  3. VEMURAFENIB [Suspect]
     Active Substance: VEMURAFENIB
     Indication: Anaplastic thyroid cancer
     Route: 048
  4. COBIMETINIB [Suspect]
     Active Substance: COBIMETINIB
     Indication: Anaplastic thyroid cancer
     Route: 065

REACTIONS (4)
  - Haematoma [Unknown]
  - Hypertransaminasaemia [Unknown]
  - Pancreatitis [Unknown]
  - Rhabdomyolysis [Unknown]
